FAERS Safety Report 13040739 (Version 4)
Quarter: 2017Q2

REPORT INFORMATION
  Report Type: Spontaneous
  Country: US (occurrence: US)
  Receive Date: 20161219
  Receipt Date: 20170425
  Transmission Date: 20170830
  Serious: Yes (Hospitalization, Other)
  Sender: FDA-Public Use
  Company Number: US-PFIZER INC-2016579678

PATIENT
  Age: 74 Year
  Sex: Male
  Weight: 109 kg

DRUGS (2)
  1. INLYTA [Suspect]
     Active Substance: AXITINIB
     Indication: RENAL CANCER METASTATIC
  2. INLYTA [Suspect]
     Active Substance: AXITINIB
     Indication: LUNG NEOPLASM MALIGNANT
     Dosage: 5 MG, 1X/DAY
     Route: 048
     Dates: start: 2015, end: 2016

REACTIONS (4)
  - Chest pain [Recovering/Resolving]
  - Product use in unapproved indication [Unknown]
  - Upper respiratory tract infection [Recovered/Resolved]
  - Pleurisy [Recovered/Resolved]

NARRATIVE: CASE EVENT DATE: 2016
